FAERS Safety Report 6905889-X (Version None)
Quarter: 2010Q3

REPORT INFORMATION
  Report Type: 
  Country: None (occurrence: None)
  Receive Date: 20100804
  Receipt Date: 20100726
  Transmission Date: 20110219
  Serious: Yes (Other)
  Sender: FDA-Public Use
  Company Number: JP-ROCHE-718259

PATIENT
  Sex: Female
  Weight: 35.4 kg

DRUGS (11)
  1. TOCILIZUMAB [Suspect]
     Indication: RHEUMATOID ARTHRITIS
     Route: 041
     Dates: start: 20080618, end: 20080618
  2. TOCILIZUMAB [Suspect]
     Route: 041
     Dates: start: 20080716, end: 20080716
  3. TOCILIZUMAB [Suspect]
     Route: 041
     Dates: start: 20080813, end: 20080813
  4. TOCILIZUMAB [Suspect]
     Route: 041
     Dates: start: 20080910, end: 20080910
  5. TOCILIZUMAB [Suspect]
     Route: 041
     Dates: start: 20081008, end: 20081008
  6. TOCILIZUMAB [Suspect]
     Route: 041
     Dates: start: 20081105, end: 20081105
  7. TOCILIZUMAB [Suspect]
     Route: 041
     Dates: start: 20081203, end: 20081203
  8. TOCILIZUMAB [Suspect]
     Route: 041
  9. PREDNISOLONE [Concomitant]
     Dosage: FORM PERORAL AGENT
     Route: 048
     Dates: start: 20080711
  10. LANSOPRAZOLE [Concomitant]
     Dosage: DRUG REPORTED AS TAPIZOL (LANSOPRAZOLE)
     Route: 048
     Dates: start: 20060711
  11. CELCOX [Concomitant]
     Route: 048
     Dates: start: 20070627, end: 20080702

REACTIONS (1)
  - SQUAMOUS CELL CARCINOMA [None]
